FAERS Safety Report 7946904-4 (Version None)
Quarter: 2011Q4

REPORT INFORMATION
  Report Type: 
  Country: None (occurrence: None)
  Receive Date: 20111129
  Receipt Date: 20111115
  Transmission Date: 20120403
  Serious: Yes (Other)
  Sender: FDA-Public Use
  Company Number: JP-MYLANLABS-2011S1024107

PATIENT
  Age: 83 Year
  Sex: Female

DRUGS (3)
  1. CILOSTAZOL [Suspect]
     Route: 065
  2. LIMAPROST [Suspect]
     Route: 065
  3. WARFARIN SODIUM [Suspect]
     Route: 065

REACTIONS (2)
  - GASTROINTESTINAL HAEMORRHAGE [None]
  - COMPLICATION OF DEVICE INSERTION [None]
